FAERS Safety Report 5009794-8 (Version None)
Quarter: 2006Q2

REPORT INFORMATION
  Report Type: 
  Country: None (occurrence: None)
  Receive Date: 20060523
  Receipt Date: 20060523
  Transmission Date: 20061013
  Serious: Yes (Other)
  Sender: FDA-Public Use
  Company Number: None

PATIENT
  Age: 50 Year
  Sex: Female

DRUGS (1)
  1. TUBERCULIN PURIFIED -PROTEIN DERIVATIVE [Suspect]
     Dosage: INTRADERMAL/LFA
     Route: 023
     Dates: start: 20060502

REACTIONS (2)
  - NAUSEA [None]
  - VOMITING [None]
